FAERS Safety Report 24201452 (Version 2)
Quarter: 2024Q3

REPORT INFORMATION
  Report Type: Report from Study
  Country: CA (occurrence: CA)
  Receive Date: 20240812
  Receipt Date: 20240827
  Transmission Date: 20241017
  Serious: Yes (Death, Other)
  Sender: VERITY PHARMACEUTICALS
  Company Number: CA-VER-202400372

PATIENT
  Age: 70 Year
  Sex: Male

DRUGS (3)
  1. TRELSTAR [Suspect]
     Active Substance: TRIPTORELIN PAMOATE
     Indication: Prostate cancer
     Dosage: 0.125 MILLIGRAM(S) (11.25 MILLIGRAM(S), 1 IN 3 MONTH), POWDER FOR PROLONGED-RELEASE SUSPENSION FOR I
     Route: 030
     Dates: start: 20231006, end: 20231006
  2. TRELSTAR [Suspect]
     Active Substance: TRIPTORELIN PAMOATE
     Indication: Prostate cancer
     Dosage: 0.125 MILLIGRAM(S) (11.25 MILLIGRAM(S), 1 IN 3 MONTH), POWDER FOR PROLONGED-RELEASE SUSPENSION FOR I
     Route: 030
     Dates: start: 20240105, end: 20240105
  3. TRELSTAR [Suspect]
     Active Substance: TRIPTORELIN PAMOATE
     Indication: Prostate cancer
     Dosage: 0.125 MILLIGRAM(S) (11.25 MILLIGRAM(S), 1 IN 3 MONTH), POWDER FOR PROLONGED-RELEASE SUSPENSION FOR I
     Route: 030
     Dates: start: 20240405, end: 20240405

REACTIONS (1)
  - Prostate cancer metastatic [Fatal]
